FAERS Safety Report 6138147-4 (Version None)
Quarter: 2009Q1

REPORT INFORMATION
  Report Type: 
  Country: None (occurrence: None)
  Receive Date: 20090327
  Receipt Date: 20090308
  Transmission Date: 20090719
  Serious: Yes (Hospitalization, Disabling, Other)
  Sender: FDA-Public Use
  Company Number: 2005S1004575

PATIENT
  Age: 56 Year
  Sex: Female
  Weight: 58.9676 kg

DRUGS (5)
  1. PHOSPHOSODA GINGER LEMON [Suspect]
     Indication: COLONOSCOPY
     Dosage: 80 ML; TOTAL; PO
     Route: 048
     Dates: start: 20040321, end: 20040322
  2. PREMARIN [Concomitant]
  3. ESOMEPRAZOLE MAGNESIUM [Concomitant]
  4. BUPROPION HYDROCHLORIDE [Concomitant]
  5. ATENOLOL [Concomitant]

REACTIONS (9)
  - ANOREXIA [None]
  - BLOOD PRESSURE SYSTOLIC INCREASED [None]
  - DEHYDRATION [None]
  - DIARRHOEA [None]
  - LARGE INTESTINAL ULCER [None]
  - NAUSEA [None]
  - NEPHROCALCINOSIS [None]
  - RENAL HYPERTROPHY [None]
  - VOMITING [None]
